FAERS Safety Report 6475342-9 (Version None)
Quarter: 2009Q4

REPORT INFORMATION
  Report Type: 
  Country: None (occurrence: None)
  Receive Date: 20091204
  Receipt Date: 20091120
  Transmission Date: 20100525
  Serious: Yes (Hospitalization)
  Sender: FDA-Public Use
  Company Number: FR-JNJFOC-20091200243

PATIENT
  Sex: Female

DRUGS (12)
  1. IXPRIM [Suspect]
     Indication: DRUG USE FOR UNKNOWN INDICATION
     Route: 048
     Dates: start: 20091001, end: 20091003
  2. EFFEXOR [Suspect]
     Indication: DRUG USE FOR UNKNOWN INDICATION
     Route: 048
     Dates: start: 20060101, end: 20091003
  3. FORLAX [Concomitant]
  4. SPAGULAX [Concomitant]
  5. ACUPAN [Concomitant]
  6. LEXOMIL [Concomitant]
  7. NULYTELY [Concomitant]
  8. DEBRIDAT [Concomitant]
  9. SERESTA [Concomitant]
  10. ESOMEPRAZOLE [Concomitant]
  11. DIFFU K [Concomitant]
  12. CORTANCYL [Concomitant]

REACTIONS (3)
  - ANXIETY [None]
  - CONFUSIONAL STATE [None]
  - HYPONATRAEMIA [None]
